FAERS Safety Report 13337186 (Version 1)
Quarter: 2017Q1

REPORT INFORMATION
  Report Type: Spontaneous
  Country: CA (occurrence: US)
  Receive Date: 20170314
  Receipt Date: 20170314
  Transmission Date: 20170428
  Serious: Yes (Other)
  Sender: FDA-Public Use
  Company Number: None

PATIENT
  Age: 57 Year
  Sex: Male
  Weight: 101.2 kg

DRUGS (8)
  1. PROLINE [Concomitant]
     Active Substance: PROLINE
  2. BOWSELLA EXTRACT [Concomitant]
  3. CALCIUM/MAGNESIUM/D [Concomitant]
  4. LYSINE [Concomitant]
     Active Substance: LYSINE
  5. OMNARIS [Suspect]
     Active Substance: CICLESONIDE
     Indication: NASAL POLYPS
     Dosage: 1 INHALATION(S) TWICE A DAY TOPICAL
     Route: 061
     Dates: start: 20170306, end: 20170308
  6. ZINC. [Concomitant]
     Active Substance: ZINC
  7. GLUCOSAMIN AND CHONDOITIN SULFATE [Concomitant]
  8. HYALONURIC ACID [Concomitant]

REACTIONS (1)
  - Skin disorder [None]

NARRATIVE: CASE EVENT DATE: 20170310
